FAERS Safety Report 22321913 (Version 1)
Quarter: 2023Q2

REPORT INFORMATION
  Report Type: Spontaneous
  Country: GR (occurrence: GR)
  Receive Date: 20230516
  Receipt Date: 20230516
  Transmission Date: 20230722
  Serious: Yes (Other)
  Sender: FDA-Public Use
  Company Number: GR-INCYTE CORPORATION-2023IN004807

PATIENT

DRUGS (2)
  1. TAFASITAMAB [Suspect]
     Active Substance: TAFASITAMAB
     Indication: Diffuse large B-cell lymphoma
     Dosage: 12 MILLIGRAM/KILOGRAM OF BODY WT (800 MG D1, 8, 15, 22 FOR C1-C2)
     Route: 042
  2. LENALIDOMIDE [Concomitant]
     Active Substance: LENALIDOMIDE
     Indication: Product used for unknown indication
     Dosage: 25 MILLIGRAM, D1-21
     Route: 065

REACTIONS (4)
  - Escherichia bacteraemia [Unknown]
  - Febrile neutropenia [Unknown]
  - Escherichia test positive [Unknown]
  - Bacterial test positive [Unknown]
